FAERS Safety Report 16747987 (Version 1)
Quarter: 2019Q3

REPORT INFORMATION
  Report Type: Report from Study
  Country: None (occurrence: BR)
  Receive Date: 20190827
  Receipt Date: 20190827
  Transmission Date: 20191005
  Serious: Yes (Hospitalization)
  Sender: FDA-Public Use
  Company Number: BR-ABBVIE-19P-020-2757132-00

PATIENT
  Age: 62 Year
  Sex: Female
  Weight: 98 kg

DRUGS (8)
  1. INFRALAX (PARACETAMOL + CAFFEINE + CARISOPRODOL+ DICLOFENAC SODIUM) [Concomitant]
     Indication: RHEUMATOID ARTHRITIS
     Route: 048
     Dates: start: 201612, end: 20190422
  2. PREDNISONE. [Concomitant]
     Active Substance: PREDNISONE
     Route: 048
     Dates: start: 20170505, end: 20190422
  3. UPADACITINIB [Suspect]
     Active Substance: UPADACITINIB
     Indication: RHEUMATOID ARTHRITIS
     Route: 048
     Dates: start: 20170607, end: 20180921
  4. UPADACITINIB [Suspect]
     Active Substance: UPADACITINIB
     Indication: RHEUMATOID ARTHRITIS
     Route: 048
     Dates: start: 20180922, end: 20190422
  5. PREDNISONE. [Concomitant]
     Active Substance: PREDNISONE
     Indication: RHEUMATOID ARTHRITIS
     Route: 048
     Dates: start: 2012, end: 20170504
  6. OMEPRAZOLE. [Concomitant]
     Active Substance: OMEPRAZOLE
     Indication: ABDOMINAL PAIN UPPER
     Route: 048
     Dates: start: 2012, end: 20190422
  7. PARACETAMOL [Concomitant]
     Active Substance: ACETAMINOPHEN
     Indication: RHEUMATOID ARTHRITIS
     Route: 048
     Dates: start: 20171220, end: 20190422
  8. PACO (PARACETAMOL + CODEIN) [Concomitant]
     Indication: OSTEOARTHRITIS
     Route: 048
     Dates: start: 2014, end: 20190422

REACTIONS (5)
  - Pneumonia [Recovered/Resolved]
  - Erysipelas [Recovered/Resolved]
  - Pulmonary embolism [Not Recovered/Not Resolved]
  - Cardiac failure congestive [Not Recovered/Not Resolved]
  - Toxicity to various agents [Recovered/Resolved]

NARRATIVE: CASE EVENT DATE: 20190418
